FAERS Safety Report 8369467-0 (Version None)
Quarter: 2012Q1

REPORT INFORMATION
  Report Type: 
  Country: None (occurrence: None)
  Receive Date: 20120323
  Receipt Date: 20111117
  Transmission Date: 20120608
  Serious: Yes (Other)
  Sender: FDA-Public Use
  Company Number: 163-21880-11112878

PATIENT
  Age: 85 Year
  Sex: Female

DRUGS (9)
  1. CALCIUM (CALCIUM) (UNKNOWN) [Concomitant]
  2. BENAZEPRIL HCL (BENAZEPRIL HYDROCHLORIDE) (UNKNOWN) [Concomitant]
  3. FAMOTIDINE [Concomitant]
  4. ASPIRIN [Concomitant]
  5. LIPITOR [Concomitant]
  6. COD LIVER OIS (COD-LIVER OIL) (UNKNOWN) [Concomitant]
  7. REVLIMID [Suspect]
     Indication: MULTIPLE MYELOMA
     Dosage: 25 MG, DAILY X 15 DAYS, PO
     Route: 048
     Dates: start: 20110927
  8. DEXAMETHASONE [Concomitant]
  9. PROCHLORPERAZINE (PROCHLORPERAZINE) (UNKNOWN) [Concomitant]

REACTIONS (1)
  - ANAEMIA [None]
